FAERS Safety Report 25278754 (Version 1)
Quarter: 2025Q2

REPORT INFORMATION
  Report Type: Spontaneous
  Country: US (occurrence: None)
  Receive Date: 20250507
  Receipt Date: 20250507
  Transmission Date: 20250716
  Serious: Yes (Other)
  Sender: FDA-CTU
  Company Number: None

PATIENT
  Age: 2 Year
  Sex: Male
  Weight: 13.5 kg

DRUGS (5)
  1. MIRALAX [Suspect]
     Active Substance: POLYETHYLENE GLYCOL 3350
     Indication: Constipation
     Dosage: FREQUENCY : TWICE A DAY;?
     Route: 048
  2. magnesium citrate daily [Concomitant]
  3. VITAMINS [Concomitant]
     Active Substance: VITAMINS
  4. PROBIOTICS NOS [Concomitant]
     Active Substance: PROBIOTICS NOS
  5. MIRALAX [Concomitant]
     Active Substance: POLYETHYLENE GLYCOL 3350

REACTIONS (4)
  - Therapy non-responder [None]
  - Hostility [None]
  - Anger [None]
  - Abnormal behaviour [None]
